FAERS Safety Report 12781623 (Version 1)
Quarter: 2016Q3

REPORT INFORMATION
  Report Type: Spontaneous
  Country: US (occurrence: US)
  Receive Date: 20160926
  Receipt Date: 20160926
  Transmission Date: 20161109
  Serious: Yes (Hospitalization)
  Sender: FDA-Public Use
  Company Number: US-JNJFOC-20160918358

PATIENT
  Sex: Male

DRUGS (4)
  1. REMICADE [Suspect]
     Active Substance: INFLIXIMAB
     Indication: PRODUCT USED FOR UNKNOWN INDICATION
     Route: 042
  2. IRON [Concomitant]
     Active Substance: IRON
     Route: 065
  3. OMEPRAZOLE. [Concomitant]
     Active Substance: OMEPRAZOLE
     Route: 065
  4. TYLENOL [Concomitant]
     Active Substance: ACETAMINOPHEN
     Route: 065

REACTIONS (9)
  - Inflammatory bowel disease [Unknown]
  - Ileal stenosis [Unknown]
  - Small intestinal haemorrhage [Unknown]
  - Anaemia [Unknown]
  - Haematochezia [Unknown]
  - Hiatus hernia [Unknown]
  - Post procedural haemorrhage [Unknown]
  - Haemorrhoids [Unknown]
  - Seasonal allergy [Unknown]
